FAERS Safety Report 14739357 (Version 1)
Quarter: 2018Q2

REPORT INFORMATION
  Report Type: Spontaneous
  Country: US (occurrence: US)
  Receive Date: 20180410
  Receipt Date: 20180410
  Transmission Date: 20180711
  Serious: No
  Sender: FDA-Public Use
  Company Number: US-UNITED THERAPEUTICS-UNT-2017-008496

PATIENT
  Sex: Male
  Weight: 81.18 kg

DRUGS (3)
  1. TYVASO [Suspect]
     Active Substance: TREPROSTINIL
     Indication: PULMONARY HYPERTENSION
     Dosage: 18 ?G, TID
  2. TYVASO [Suspect]
     Active Substance: TREPROSTINIL
     Indication: PULMONARY ARTERIAL HYPERTENSION
     Dosage: 18-54 MICROGRAMS, QID
     Dates: start: 20160212
  3. TYVASO [Suspect]
     Active Substance: TREPROSTINIL
     Dosage: UNK

REACTIONS (10)
  - Pain in extremity [Unknown]
  - Fatigue [Unknown]
  - Neuropathy peripheral [Unknown]
  - Throat irritation [Recovering/Resolving]
  - Oedema peripheral [Unknown]
  - Cough [Recovering/Resolving]
  - Off label use [Unknown]
  - Influenza [Unknown]
  - Dyspnoea [Unknown]
  - Asthenia [Unknown]
